FAERS Safety Report 19193306 (Version 3)
Quarter: 2021Q3

REPORT INFORMATION
  Report Type: Report from Study
  Country: CO (occurrence: CO)
  Receive Date: 20210428
  Receipt Date: 20210923
  Transmission Date: 20211014
  Serious: Yes (Hospitalization, Other)
  Sender: FDA-Public Use
  Company Number: CO-INCYTE CORPORATION-2021IN003672

PATIENT

DRUGS (3)
  1. JAKAVI [Suspect]
     Active Substance: RUXOLITINIB
     Dosage: 2 DF (IN THE MORNING AND IN THE NIGHT)
     Route: 048
  2. JAKAVI [Suspect]
     Active Substance: RUXOLITINIB
     Dosage: 1 DF, DAILY
     Route: 048
  3. JAKAVI [Suspect]
     Active Substance: RUXOLITINIB
     Indication: MYELOFIBROSIS
     Dosage: 15 MG, Q12H
     Route: 048

REACTIONS (8)
  - Decreased immune responsiveness [Unknown]
  - Carpal tunnel syndrome [Unknown]
  - Off label use [Unknown]
  - Myelofibrosis [Unknown]
  - Feeling abnormal [Unknown]
  - Product dispensing issue [Unknown]
  - Disease recurrence [Unknown]
  - Depressed mood [Unknown]
